FAERS Safety Report 8725211 (Version 3)
Quarter: 2013Q3

REPORT INFORMATION
  Report Type: Spontaneous
  Country: HK (occurrence: HK)
  Receive Date: 20120815
  Receipt Date: 20130801
  Transmission Date: 20140515
  Serious: Yes (Death, Hospitalization)
  Sender: FDA-Public Use
  Company Number: HK-ELI_LILLY_AND_COMPANY-HK201208002178

PATIENT
  Age: 38 Year
  Sex: Female
  Weight: 68.3 kg

DRUGS (7)
  1. GEMZAR [Suspect]
     Indication: OVARIAN CANCER
     Dosage: UNK UNK, SINGLE
     Dates: start: 20120208
  2. HEPARIN [Concomitant]
  3. ENOXAPARIN [Concomitant]
  4. PYRIDOXINE [Concomitant]
  5. METOCLOPRAMIDE [Concomitant]
  6. TRI-ACT [Concomitant]
  7. FLUIMUCIL [Concomitant]

REACTIONS (3)
  - Malignant neoplasm progression [Fatal]
  - Ascites [Recovered/Resolved]
  - Platelet count decreased [Recovered/Resolved]
